FAERS Safety Report 18714405 (Version 2)
Quarter: 2021Q1

REPORT INFORMATION
  Report Type: Spontaneous
  Country: CL (occurrence: CL)
  Receive Date: 20210108
  Receipt Date: 20210211
  Transmission Date: 20210419
  Serious: Yes (Other)
  Sender: FDA-Public Use
  Company Number: CL-ROCHE-2745211

PATIENT
  Age: 64 Year
  Sex: Male

DRUGS (14)
  1. CYCLOPHOSPHAMIDE. [Concomitant]
     Active Substance: CYCLOPHOSPHAMIDE
     Indication: NON-HODGKIN^S LYMPHOMA
     Dates: start: 20200427
  2. BENDAMUSTINE [Concomitant]
     Active Substance: BENDAMUSTINE
     Indication: NON-HODGKIN^S LYMPHOMA
     Route: 058
     Dates: start: 20201021
  3. PREDNISONE. [Concomitant]
     Active Substance: PREDNISONE
     Indication: NON-HODGKIN^S LYMPHOMA
     Dates: start: 20200427
  4. PREDNISONE. [Concomitant]
     Active Substance: PREDNISONE
  5. RITUXIMAB. [Suspect]
     Active Substance: RITUXIMAB
     Indication: NON-HODGKIN^S LYMPHOMA
     Route: 058
     Dates: start: 20201021
  6. QUETIAPINE. [Concomitant]
     Active Substance: QUETIAPINE
     Route: 048
  7. RITUXIMAB. [Suspect]
     Active Substance: RITUXIMAB
     Indication: NON-HODGKIN^S LYMPHOMA
     Route: 065
     Dates: start: 20200427
  8. VINCRISTINE [Concomitant]
     Active Substance: VINCRISTINE
     Indication: NON-HODGKIN^S LYMPHOMA
     Dates: start: 20200427
  9. ATORVASTATIN [Concomitant]
     Active Substance: ATORVASTATIN
  10. DOXORUBICIN [Concomitant]
     Active Substance: DOXORUBICIN
     Indication: NON-HODGKIN^S LYMPHOMA
     Dates: start: 20200427
  11. OMEPRAZOLE. [Concomitant]
     Active Substance: OMEPRAZOLE
  12. POLATUZUMAB VEDOTIN. [Suspect]
     Active Substance: POLATUZUMAB VEDOTIN
     Indication: NON-HODGKIN^S LYMPHOMA
     Route: 058
     Dates: start: 20201119
  13. ACYCLOVIR. [Concomitant]
     Active Substance: ACYCLOVIR
     Route: 048
  14. LACTULOSE. [Concomitant]
     Active Substance: LACTULOSE
     Dosage: 10 CC
     Route: 048

REACTIONS (22)
  - Non-Hodgkin^s lymphoma refractory [Unknown]
  - Anaemia [Unknown]
  - Upper gastrointestinal haemorrhage [Unknown]
  - Gastric cancer [Unknown]
  - Pyrexia [Unknown]
  - Disease recurrence [Unknown]
  - Lung neoplasm [Unknown]
  - Retroperitoneal lymphadenopathy [Unknown]
  - Varices oesophageal [Unknown]
  - Lymphoma [Unknown]
  - Tumour associated fever [Unknown]
  - Neutropenia [Unknown]
  - Oesophageal candidiasis [Unknown]
  - Gastric mucosal lesion [Unknown]
  - Polyneuropathy [Unknown]
  - Therapy partial responder [Unknown]
  - Splenomegaly [Unknown]
  - Malignant splenic neoplasm [Unknown]
  - Abdominal lymphadenopathy [Unknown]
  - Hydrocele [Unknown]
  - Neoplasm [Unknown]
  - Renal cyst [Unknown]

NARRATIVE: CASE EVENT DATE: 20201013
